FAERS Safety Report 5011971-7 (Version None)
Quarter: 2006Q2

REPORT INFORMATION
  Report Type: 
  Country: None (occurrence: None)
  Receive Date: 20060524
  Receipt Date: 20060509
  Transmission Date: 20061013
  Serious: Yes (Hospitalization)
  Sender: FDA-Public Use
  Company Number: FACT0600241

PATIENT
  Age: 34 Year
  Sex: Female

DRUGS (1)
  1. FACTIVE [Suspect]
     Indication: RESPIRATORY TRACT INFECTION BACTERIAL
     Dosage: 320  MG, QD, ORAL
     Route: 048
     Dates: start: 20051017, end: 20051021

REACTIONS (4)
  - ANAPHYLACTIC REACTION [None]
  - DYSPNOEA [None]
  - FATIGUE [None]
  - URTICARIA [None]
